FAERS Safety Report 9820419 (Version 1)
Quarter: 2013Q4

REPORT INFORMATION
  Report Type: Spontaneous
  Country: US (occurrence: None)
  Receive Date: 20131028
  Receipt Date: 20131028
  Transmission Date: 20140711
  Serious: Yes (Hospitalization)
  Sender: FDA-Public Use
  Company Number: 2013US001599

PATIENT
  Age: 75 Year
  Sex: Male
  Weight: 73 kg

DRUGS (8)
  1. ICLUSIG [Suspect]
     Indication: CHRONIC MYELOID LEUKAEMIA
     Route: 048
     Dates: start: 20130116
  2. AZO (AZITHROMYCIN) [Concomitant]
  3. METOPROLOL SUCCINATE ER (METOPROLOL SUCCINATE) [Concomitant]
  4. ATORVASTATIN (ATORVASTATIN) [Concomitant]
  5. MORPHINE SULFATE (MORPHINE SULFATE) [Concomitant]
  6. VESICARE (SOLIFENACIN SUCCINATE) [Concomitant]
  7. HYOSCYAMINE (HYOSCYAMINE) [Concomitant]
  8. LISINOPRIL (LISINOPRIL) [Concomitant]

REACTIONS (1)
  - Headache [None]
